FAERS Safety Report 24384818 (Version 1)
Quarter: 2024Q4

REPORT INFORMATION
  Report Type: Spontaneous
  Country: US (occurrence: US)
  Receive Date: 20241001
  Receipt Date: 20241001
  Transmission Date: 20250115
  Serious: Yes (Death)
  Sender: GLAXOSMITHKLINE
  Company Number: US-GSK-US2024119760

PATIENT

DRUGS (2)
  1. BREO ELLIPTA [Suspect]
     Active Substance: FLUTICASONE FUROATE\VILANTEROL TRIFENATATE
     Indication: Chronic obstructive pulmonary disease
     Dosage: 200/25 MCG
     Dates: end: 20240924
  2. ACETAMINOPHEN [Concomitant]
     Active Substance: ACETAMINOPHEN
     Indication: Neck pain
     Dosage: 500 MG
     Dates: start: 20240923, end: 20240923

REACTIONS (5)
  - Fall [Fatal]
  - Musculoskeletal discomfort [Unknown]
  - Chills [Unknown]
  - Gait inability [Unknown]
  - Head injury [Unknown]

NARRATIVE: CASE EVENT DATE: 20240923
